FAERS Safety Report 22210581 (Version 1)
Quarter: 2023Q2

REPORT INFORMATION
  Report Type: Spontaneous
  Country: CN (occurrence: CN)
  Receive Date: 20230414
  Receipt Date: 20230414
  Transmission Date: 20230722
  Serious: Yes (Other)
  Sender: FDA-Public Use
  Company Number: None

PATIENT
  Age: 42 Year
  Sex: Female

DRUGS (18)
  1. CYCLOPHOSPHAMIDE [Suspect]
     Active Substance: CYCLOPHOSPHAMIDE
     Indication: Plasmablastic lymphoma
     Dosage: AT 12:14 1000 MG, QD, DILUTED WITH 100 ML OF 0.9 % SODIUM CHLORIDE, AS A PART OF CHOPE REGIMEN
     Route: 041
     Dates: start: 20230401, end: 20230401
  2. CYCLOPHOSPHAMIDE [Suspect]
     Active Substance: CYCLOPHOSPHAMIDE
     Indication: B-cell lymphoma
  3. CYCLOPHOSPHAMIDE [Suspect]
     Active Substance: CYCLOPHOSPHAMIDE
     Indication: Neoplasm
  4. SODIUM CHLORIDE [Suspect]
     Active Substance: SODIUM CHLORIDE
     Indication: Medication dilution
     Dosage: AT 12:14, 0.9% 100 ML, QD, USED TO DILUTE 1000 MG CYCLOPHOSPHAMIDE, DOSAGE FORM: INJECTION, AS A PAR
     Route: 041
     Dates: start: 20230401, end: 20230401
  5. SODIUM CHLORIDE [Suspect]
     Active Substance: SODIUM CHLORIDE
     Dosage: AT 11: 00, 0.9% 250 ML, QD, USED TO DILUTE 100 MG EPIRUBICIN HYDROCHLORIDE, DOSAGE FORM: INJECTION,
     Route: 041
     Dates: start: 20230401, end: 20230401
  6. SODIUM CHLORIDE [Suspect]
     Active Substance: SODIUM CHLORIDE
     Dosage: AT 10:22, 0.9% 100 ML, QD, USED TO DILUTE 2 MG VINCRISTINE SULFATE, DOSAGE FORM: INJECTION, AS A PAR
     Route: 041
     Dates: start: 20230401, end: 20230401
  7. SODIUM CHLORIDE [Suspect]
     Active Substance: SODIUM CHLORIDE
     Dosage: 0.9% 500 ML, QD, USED TO DILUTE 100 MG ETOPOSIDE, DOSAGE FORM: INJECTION, AS A PART OF CHOPE REGIMEN
     Route: 041
     Dates: start: 20230401, end: 20230403
  8. EPIRUBICIN HYDROCHLORIDE [Suspect]
     Active Substance: EPIRUBICIN HYDROCHLORIDE
     Indication: B-cell lymphoma
     Dosage: AT 11:00, 100 MG, QD, DILUTED WITH 250 ML OF 0.9 % SODIUM CHLORIDE, AS A PART OF CHOPE REGIMEN
     Route: 041
     Dates: start: 20230401, end: 20230401
  9. EPIRUBICIN HYDROCHLORIDE [Suspect]
     Active Substance: EPIRUBICIN HYDROCHLORIDE
     Indication: Plasmablastic lymphoma
  10. EPIRUBICIN HYDROCHLORIDE [Suspect]
     Active Substance: EPIRUBICIN HYDROCHLORIDE
     Indication: Neoplasm
  11. VINCRISTINE SULFATE [Suspect]
     Active Substance: VINCRISTINE SULFATE
     Indication: Plasmablastic lymphoma
     Dosage: AT 10:22, 2 MG, QD, DILUTED WITH 100 ML OF 0.9 % SODIUM CHLORIDE, AS A PART OF CHOPE REGIMEN
     Route: 041
     Dates: start: 20230401, end: 20230401
  12. VINCRISTINE SULFATE [Suspect]
     Active Substance: VINCRISTINE SULFATE
     Indication: B-cell lymphoma
  13. VINCRISTINE SULFATE [Suspect]
     Active Substance: VINCRISTINE SULFATE
     Indication: Neoplasm
  14. ETOPOSIDE [Suspect]
     Active Substance: ETOPOSIDE
     Indication: B-cell lymphoma
     Dosage: 100 MG, QD, DILUTED WITH 500 ML OF 0.9 % SODIUM CHLORIDE, AS A PART OF CHOPE REGIMEN
     Route: 041
     Dates: start: 20230401, end: 20230403
  15. ETOPOSIDE [Suspect]
     Active Substance: ETOPOSIDE
     Indication: Plasmablastic lymphoma
  16. ETOPOSIDE [Suspect]
     Active Substance: ETOPOSIDE
     Indication: Neoplasm
  17. PREDNISONE [Suspect]
     Active Substance: PREDNISONE
     Indication: B-cell lymphoma
     Dosage: AS A PART OF CHOPE REGIMEN
     Route: 065
     Dates: start: 20230401
  18. PREDNISONE [Suspect]
     Active Substance: PREDNISONE
     Indication: Plasmablastic lymphoma

REACTIONS (1)
  - White blood cell count decreased [Unknown]

NARRATIVE: CASE EVENT DATE: 20230405
